FAERS Safety Report 4959552-5 (Version None)
Quarter: 2006Q1

REPORT INFORMATION
  Report Type: 
  Country: None (occurrence: None)
  Receive Date: 20060331
  Receipt Date: 20060321
  Transmission Date: 20060701
  Serious: Yes (Other)
  Sender: FDA-Public Use
  Company Number: MT-GLAXOSMITHKLINE-B0418437A

PATIENT
  Age: 2 Year
  Sex: Female
  Weight: 12 kg

DRUGS (3)
  1. AUGMENTIN '125' [Suspect]
     Indication: UPPER RESPIRATORY TRACT INFECTION
     Dosage: 2.5ML TWICE PER DAY
     Route: 048
     Dates: start: 20060213, end: 20060218
  2. ACTIFED [Concomitant]
     Dosage: 2.5ML THREE TIMES PER DAY
     Dates: start: 20060209, end: 20060222
  3. TYLENOL (CAPLET) [Concomitant]
     Dosage: 200MG TWICE PER DAY
     Dates: start: 20060211, end: 20060215

REACTIONS (3)
  - ABNORMAL BEHAVIOUR [None]
  - INTENTIONAL SELF-INJURY [None]
  - PSYCHOMOTOR HYPERACTIVITY [None]
